FAERS Safety Report 21822839 (Version 1)
Quarter: 2023Q1

REPORT INFORMATION
  Report Type: Report from Study
  Country: US (occurrence: US)
  Receive Date: 20230105
  Receipt Date: 20230105
  Transmission Date: 20230418
  Serious: No
  Sender: FDA-Public Use
  Company Number: US-ABBVIE-4226423

PATIENT
  Sex: Female

DRUGS (2)
  1. RINVOQ [Suspect]
     Active Substance: UPADACITINIB
     Indication: Psoriasis
     Route: 048
  2. MODERNA COVID-19 VACCINE [Suspect]
     Active Substance: ELASOMERAN
     Indication: COVID-19 immunisation
     Route: 030
     Dates: start: 20221204, end: 20221204

REACTIONS (7)
  - Diarrhoea [Not Recovered/Not Resolved]
  - Pain in extremity [Not Recovered/Not Resolved]
  - Influenza like illness [Not Recovered/Not Resolved]
  - Axillary pain [Unknown]
  - Breast pain [Unknown]
  - Dry mouth [Not Recovered/Not Resolved]
  - Asthenia [Unknown]
